FAERS Safety Report 5206215-7 (Version None)
Quarter: 2006Q4

REPORT INFORMATION
  Report Type: 
  Country: None (occurrence: None)
  Receive Date: 20061026
  Receipt Date: 20060630
  Transmission Date: 20070319
  Serious: No
  Sender: FDA-Public Use
  Company Number: 2006065152

PATIENT
  Age: 47 Year
  Sex: Female
  Weight: 74.8435 kg

DRUGS (4)
  1. LYRICA [Suspect]
     Indication: BACK PAIN
     Dosage: 300 MG (150 MG, 2 IN 1 D); ORAL
     Route: 048
  2. LEXAPRO [Concomitant]
  3. YASMIN [Concomitant]
  4. NASACORT [Concomitant]

REACTIONS (4)
  - DROOLING [None]
  - DRUG EFFECT DECREASED [None]
  - FOOD CRAVING [None]
  - WEIGHT INCREASED [None]
